FAERS Safety Report 10269070 (Version 1)
Quarter: 2014Q2

REPORT INFORMATION
  Report Type: Spontaneous
  Country: DE (occurrence: DE)
  Receive Date: 20140630
  Receipt Date: 20140630
  Transmission Date: 20141212
  Serious: Yes (Hospitalization)
  Sender: FDA-Public Use
  Company Number: GXKR2014DE002415

PATIENT
  Sex: 0

DRUGS (1)
  1. ENAHEXAL [Suspect]
     Dosage: 5 MG, UNK
     Route: 048
     Dates: start: 20140526

REACTIONS (2)
  - Generalised oedema [Unknown]
  - Dyspnoea [Unknown]
